FAERS Safety Report 25322290 (Version 1)
Quarter: 2025Q2

REPORT INFORMATION
  Report Type: Spontaneous
  Country: FR (occurrence: FR)
  Receive Date: 20250516
  Receipt Date: 20250516
  Transmission Date: 20250717
  Serious: Yes (Other)
  Sender: Teyro Labs
  Company Number: FR-TEYRO-2025-TY-000330

PATIENT

DRUGS (3)
  1. GEMCITABINE [Suspect]
     Active Substance: GEMCITABINE
     Indication: Transitional cell carcinoma
     Route: 042
  2. DURVALUMAB [Suspect]
     Active Substance: DURVALUMAB
     Indication: Transitional cell carcinoma
     Route: 042
  3. CISPLATIN [Suspect]
     Active Substance: CISPLATIN
     Indication: Transitional cell carcinoma
     Route: 065

REACTIONS (2)
  - Neoplasm progression [Unknown]
  - Off label use [Unknown]
